FAERS Safety Report 5140035-7 (Version None)
Quarter: 2006Q4

REPORT INFORMATION
  Report Type: 
  Country: None (occurrence: None)
  Receive Date: 20061024
  Receipt Date: 20061004
  Transmission Date: 20070319
  Serious: Yes (Other)
  Sender: FDA-Public Use
  Company Number: US200601001051

PATIENT
  Age: 33 Year
  Sex: Male
  Weight: 140.6 kg

DRUGS (18)
  1. ZYPREXA [Suspect]
     Indication: DEPRESSION
     Dosage: 10 MG
     Dates: start: 20010101
  2. SULAR [Concomitant]
  3. TENORETIC 100 [Concomitant]
  4. MONOPRIL [Concomitant]
  5. LIPITOR [Concomitant]
  6. ZOLOFT [Concomitant]
  7. TRILEPTAL [Concomitant]
  8. CLONAZEPAM [Concomitant]
  9. LORTAB [Concomitant]
  10. COZAAR [Concomitant]
  11. WELLBUTRIN [Concomitant]
  12. ULTRAM [Concomitant]
  13. LODINE [Concomitant]
  14. PRILOSEC [Concomitant]
  15. PROCARDIA XL [Concomitant]
  16. LEXAPRO /USA/ (ESCITALOPRAM) [Concomitant]
  17. COREG [Concomitant]
  18. HYDROCHLORZIDE (HYDROCHLOROTHIAZIDE) [Concomitant]

REACTIONS (9)
  - ALANINE AMINOTRANSFERASE INCREASED [None]
  - ASPARTATE AMINOTRANSFERASE INCREASED [None]
  - CHOLECYSTITIS [None]
  - CONDITION AGGRAVATED [None]
  - COSTOCHONDRITIS [None]
  - DIABETES MELLITUS INADEQUATE CONTROL [None]
  - DIABETES MELLITUS NON-INSULIN-DEPENDENT [None]
  - HYPERLIPIDAEMIA [None]
  - WEIGHT INCREASED [None]
